FAERS Safety Report 18997793 (Version 1)
Quarter: 2021Q1

REPORT INFORMATION
  Report Type: Spontaneous
  Country: SE (occurrence: SE)
  Receive Date: 20210311
  Receipt Date: 20210311
  Transmission Date: 20210420
  Serious: Yes (Hospitalization)
  Sender: FDA-Public Use
  Company Number: SE-ASTRAZENECA-2021A110772

PATIENT
  Age: 25 Year
  Sex: Female

DRUGS (2)
  1. QUETIAPINE. [Suspect]
     Active Substance: QUETIAPINE
     Dosage: 200.0MG ONCE/SINGLE ADMINISTRATION
     Route: 065
     Dates: start: 20210202
  2. KALIUM [Suspect]
     Active Substance: POTASSIUM CHLORIDE
     Dosage: PACK OF 100 POTASSIUM TABLETS, ONCE/SINGLE ADMINISTRATION
     Route: 065
     Dates: start: 20210202

REACTIONS (5)
  - Intentional overdose [Recovering/Resolving]
  - Sinus tachycardia [Recovering/Resolving]
  - Intentional self-injury [Recovering/Resolving]
  - Electrocardiogram QT prolonged [Recovering/Resolving]
  - Toxicity to various agents [Recovering/Resolving]

NARRATIVE: CASE EVENT DATE: 202102
